FAERS Safety Report 20094948 (Version 1)
Quarter: 2021Q4

REPORT INFORMATION
  Report Type: Spontaneous
  Country: BR (occurrence: BR)
  Receive Date: 20211122
  Receipt Date: 20211122
  Transmission Date: 20220304
  Serious: Yes (Hospitalization)
  Sender: FDA-Public Use
  Company Number: BR-BAUSCH-BL-2021-038126

PATIENT
  Age: 80 Year
  Sex: Female
  Weight: 50 kg

DRUGS (3)
  1. XIFAXAN [Suspect]
     Active Substance: RIFAXIMIN
     Indication: Hepatic encephalopathy
     Dosage: 1 PILL IN THE MORNING AND 1 PILL AT NIGHT
     Route: 048
     Dates: start: 20211028, end: 20211101
  2. HEPA-MERZ [Concomitant]
     Indication: Polyuria
     Dosage: 2 SACHETS/DAY
     Route: 048
     Dates: start: 20211028
  3. LACTULONA [Concomitant]
     Indication: Polyuria
     Dates: start: 20211013

REACTIONS (3)
  - Dehydration [Not Recovered/Not Resolved]
  - Diarrhoea [Recovered/Resolved]
  - Faeces discoloured [Recovered/Resolved]

NARRATIVE: CASE EVENT DATE: 20211031
